FAERS Safety Report 7256167-3 (Version None)
Quarter: 2011Q1

REPORT INFORMATION
  Report Type: 
  Country: None (occurrence: None)
  Receive Date: 20110129
  Receipt Date: 20100601
  Transmission Date: 20110831
  Serious: No
  Sender: FDA-Public Use
  Company Number: US-ABBOTT-10P-163-0648775-00

PATIENT
  Age: 63 Year
  Sex: Female
  Weight: 65.83 kg

DRUGS (17)
  1. HUMIRA [Suspect]
     Indication: PSORIATIC ARTHROPATHY
  2. LIPITOR [Concomitant]
     Indication: PRODUCT USED FOR UNKNOWN INDICATION
     Route: 048
  3. PREDNISONE [Concomitant]
     Indication: ASTHMA
     Dosage: ONCE DAILY-TO TAKE FOR 2 MONTHS
     Route: 048
  4. CLONIDINE [Concomitant]
     Indication: HYPERTENSION
     Route: 048
  5. VITAMIN D [Concomitant]
     Indication: PRODUCT USED FOR UNKNOWN INDICATION
     Route: 048
  6. HUMIRA [Suspect]
     Indication: RHEUMATOID ARTHRITIS
  7. PREDNISONE [Concomitant]
     Indication: COLITIS
     Dosage: WEANED DOWN TO 6 MG RECENTLY IN 2010
  8. HUMIRA [Suspect]
     Indication: RHEUMATOID ARTHRITIS
  9. HUMIRA [Suspect]
     Indication: PSORIASIS
     Dosage: SAMPLES FROM MD OFFICE.
     Route: 058
     Dates: start: 20100308, end: 20100401
  10. BISOPRO FUM [Concomitant]
     Indication: PRODUCT USED FOR UNKNOWN INDICATION
     Route: 048
  11. LEVOXYL [Concomitant]
     Indication: HYPOTHYROIDISM
     Route: 048
  12. COMBIVENT [Concomitant]
     Indication: ASTHMA
     Dosage: 2 PUFFS DAILY
     Route: 055
  13. HUMIRA [Suspect]
     Indication: PSORIASIS
     Route: 058
     Dates: start: 20100401
  14. HUMIRA [Suspect]
     Indication: PSORIATIC ARTHROPATHY
  15. FLOVENT HFA [Concomitant]
     Indication: ASTHMA
     Dosage: 2 PUFFS DAILY
     Route: 055
  16. ASPIRIN [Concomitant]
     Indication: PRODUCT USED FOR UNKNOWN INDICATION
     Route: 048
  17. CLORICIDENT HVP [Concomitant]
     Indication: HYPERSENSITIVITY

REACTIONS (8)
  - FATIGUE [None]
  - RHEUMATOID ARTHRITIS [None]
  - CHEST PAIN [None]
  - BLOOD PRESSURE INCREASED [None]
  - DRUG INEFFECTIVE [None]
  - INJECTION SITE PAIN [None]
  - WEIGHT INCREASED [None]
  - HEADACHE [None]
